FAERS Safety Report 6255226-1 (Version None)
Quarter: 2009Q3

REPORT INFORMATION
  Report Type: 
  Country: None (occurrence: None)
  Receive Date: 20090702
  Receipt Date: 20090701
  Transmission Date: 20100115
  Serious: Yes (Life-Threatening, Hospitalization)
  Sender: FDA-Public Use
  Company Number: US-VALEANT-2009VX001181

PATIENT
  Age: 3 Year
  Sex: Female

DRUGS (1)
  1. DIASTAT [Suspect]
     Route: 054
     Dates: start: 20070302, end: 20070302

REACTIONS (1)
  - RESPIRATORY ARREST [None]
